FAERS Safety Report 12301289 (Version 1)
Quarter: 2016Q2

REPORT INFORMATION
  Report Type: Spontaneous
  Country: CH (occurrence: FR)
  Receive Date: 20160425
  Receipt Date: 20160425
  Transmission Date: 20160815
  Serious: Yes (Hospitalization)
  Sender: FDA-Public Use
  Company Number: CH-LPDUSPRD-20160326

PATIENT
  Age: 46 Year
  Sex: Female

DRUGS (4)
  1. VITAMIN B12 [Concomitant]
     Active Substance: CYANOCOBALAMIN
     Route: 065
  2. LOVENOX [Concomitant]
     Active Substance: ENOXAPARIN SODIUM
     Route: 065
  3. VENOFER [Suspect]
     Active Substance: IRON SUCROSE
     Dosage: ?? (ANOTHER CYCLE)
     Route: 041
     Dates: start: 20151205
  4. VENOFER [Suspect]
     Active Substance: IRON SUCROSE
     Dosage: FIRST CYCLE
     Route: 041
     Dates: start: 20151130, end: 20151204

REACTIONS (3)
  - Rash papular [Unknown]
  - Blood immunoglobulin E increased [Unknown]
  - Prurigo [Unknown]

NARRATIVE: CASE EVENT DATE: 2015
